FAERS Safety Report 20197462 (Version 1)
Quarter: 2021Q4

REPORT INFORMATION
  Report Type: Spontaneous
  Country: US (occurrence: US)
  Receive Date: 20211217
  Receipt Date: 20211217
  Transmission Date: 20220303
  Serious: No
  Sender: FDA-Public Use
  Company Number: US-PACIRA-2021000064

PATIENT

DRUGS (2)
  1. EXPAREL [Suspect]
     Active Substance: BUPIVACAINE
     Dosage: NOT PROVIDED
  2. LIDODERM [Concomitant]
     Active Substance: LIDOCAINE
     Dosage: NOT PROVIDED
     Route: 062

REACTIONS (2)
  - Labelled drug-drug interaction medication error [Unknown]
  - Pain [Unknown]
